FAERS Safety Report 23353528 (Version 1)
Quarter: 2023Q4

REPORT INFORMATION
  Report Type: Report from Study
  Country: IL (occurrence: IL)
  Receive Date: 20231231
  Receipt Date: 20231231
  Transmission Date: 20240109
  Serious: Yes (Death, Other)
  Sender: FDA-Public Use
  Company Number: IL-TAKEDA-2023TUS124895

PATIENT
  Age: 63 Year
  Sex: Male

DRUGS (1)
  1. VEDOLIZUMAB [Suspect]
     Active Substance: VEDOLIZUMAB
     Indication: Crohn^s disease
     Dosage: 300 MILLIGRAM
     Route: 042
     Dates: start: 202007, end: 202308

REACTIONS (2)
  - Death [Fatal]
  - Malignant melanoma [Unknown]

NARRATIVE: CASE EVENT DATE: 20230801
